FAERS Safety Report 18555856 (Version 1)
Quarter: 2020Q4

REPORT INFORMATION
  Report Type: Spontaneous
  Country: AT (occurrence: AT)
  Receive Date: 20201127
  Receipt Date: 20201127
  Transmission Date: 20210114
  Serious: Yes (Other)
  Sender: FDA-Public Use
  Company Number: NVSC2020AT310261

PATIENT
  Age: 60 Year
  Sex: Male
  Weight: 75 kg

DRUGS (26)
  1. FOLINIC ACID [Suspect]
     Active Substance: LEUCOVORIN
     Dosage: 390 MG
     Route: 065
     Dates: start: 20200909
  2. FOLINIC ACID [Suspect]
     Active Substance: LEUCOVORIN
     Dosage: 385 MG
     Route: 065
     Dates: start: 20201104
  3. VECTIBIX [Suspect]
     Active Substance: PANITUMUMAB
     Dosage: 450 MG
     Route: 042
     Dates: start: 20201104
  4. SYMBICORT [Concomitant]
     Active Substance: BUDESONIDE\FORMOTEROL FUMARATE DIHYDRATE
     Indication: CHRONIC OBSTRUCTIVE PULMONARY DISEASE
     Dosage: 2 UNK, BID
     Route: 065
  5. FLUOROURACIL. [Suspect]
     Active Substance: FLUOROURACIL
     Dosage: 771 MG
     Route: 040
     Dates: start: 20200616
  6. OXALIPLATIN. [Suspect]
     Active Substance: OXALIPLATIN
     Dosage: 124 MG
     Route: 065
     Dates: start: 20200909
  7. FOLINIC ACID [Suspect]
     Active Substance: LEUCOVORIN
     Dosage: 383 MG
     Route: 065
     Dates: start: 20200715
  8. VECTIBIX [Suspect]
     Active Substance: PANITUMUMAB
     Indication: COLORECTAL CANCER METASTATIC
     Dosage: 450 MG
     Route: 042
     Dates: start: 20200616
  9. GRANISETRON [Concomitant]
     Active Substance: GRANISETRON
     Indication: NAUSEA
     Dosage: 2 MILLIGRAM, AS NEEDED
     Route: 048
     Dates: start: 20200616, end: 20200909
  10. OXALIPLATIN. [Suspect]
     Active Substance: OXALIPLATIN
     Dosage: 163 MG
     Route: 065
     Dates: start: 20200715
  11. FOLINIC ACID [Suspect]
     Active Substance: LEUCOVORIN
     Indication: COLORECTAL CANCER METASTATIC
     Dosage: 385 MG
     Route: 065
     Dates: start: 20200616
  12. PASPERTIN [Concomitant]
     Indication: NAUSEA
     Dosage: 10 MILLIGRAM, AS NEEDED
     Route: 048
     Dates: start: 20200616, end: 20200909
  13. AMLODIPIN [Concomitant]
     Active Substance: AMLODIPINE BESYLATE
     Indication: HYPERTENSION
     Dosage: 10 MG
     Route: 048
  14. FLUOROURACIL. [Suspect]
     Active Substance: FLUOROURACIL
     Dosage: 766 MG
     Route: 040
     Dates: start: 20200715
  15. OXALIPLATIN. [Suspect]
     Active Substance: OXALIPLATIN
     Dosage: 123 MG
     Route: 065
     Dates: start: 20201104
  16. THROMBO ASS [Concomitant]
     Active Substance: ASPIRIN
     Indication: THROMBOSIS PROPHYLAXIS
     Dosage: 100 MILLIGRAM, DAILY
     Route: 048
  17. FLUOROURACIL. [Suspect]
     Active Substance: FLUOROURACIL
     Dosage: 1150 MG
     Route: 042
     Dates: start: 20200715
  18. FLUOROURACIL. [Suspect]
     Active Substance: FLUOROURACIL
     Dosage: 1156 MG
     Route: 042
     Dates: start: 20201104
  19. VECTIBIX [Suspect]
     Active Substance: PANITUMUMAB
     Dosage: 462 MG
     Route: 042
     Dates: start: 20200909
  20. FORTECORTIN [Concomitant]
     Active Substance: DEXAMETHASONE
     Indication: PROPHYLAXIS
     Dosage: 4 MG, ONCE/SINGLE (4 MILLIGRAM, ONCE)
     Route: 048
     Dates: start: 20200616, end: 20200909
  21. FLUOROURACIL. [Suspect]
     Active Substance: FLUOROURACIL
     Indication: COLORECTAL CANCER METASTATIC
     Dosage: 1156 MG
     Route: 042
     Dates: start: 20200616
  22. MINOSTAD [Concomitant]
     Indication: PROPHYLAXIS
     Dosage: 100 MG, QD (50 MILLIGRAM, BID)
     Route: 048
     Dates: start: 20200617
  23. FLUOROURACIL. [Suspect]
     Active Substance: FLUOROURACIL
     Dosage: 1169 MG
     Route: 042
     Dates: start: 20200909
  24. OXALIPLATIN. [Suspect]
     Active Substance: OXALIPLATIN
     Indication: COLORECTAL CANCER METASTATIC
     Dosage: 164 MG
     Route: 065
     Dates: start: 20200616
  25. VECTIBIX [Suspect]
     Active Substance: PANITUMUMAB
     Dosage: 444 MG
     Route: 042
     Dates: start: 20200715
  26. ENTEROBENE [Concomitant]
     Indication: DIARRHOEA
     Dosage: 2 MILLIGRAM, AS NEEDED
     Route: 048
     Dates: start: 20200616, end: 20200909

REACTIONS (3)
  - Rash [Recovered/Resolved]
  - Polyneuropathy [Recovered/Resolved]
  - Rash [Not Recovered/Not Resolved]

NARRATIVE: CASE EVENT DATE: 20200701
